FAERS Safety Report 7587023-9 (Version None)
Quarter: 2011Q3

REPORT INFORMATION
  Report Type: 
  Country: None (occurrence: None)
  Receive Date: 20110701
  Receipt Date: 20110624
  Transmission Date: 20111222
  Serious: Yes (Hospitalization)
  Sender: FDA-Public Use
  Company Number: PHHO2011US09572

PATIENT
  Sex: Male
  Weight: 54.4 kg

DRUGS (7)
  1. AFINITOR [Interacting]
     Indication: ASTROCYTOMA, LOW GRADE
     Dosage: CODE NOT BROKEN
     Route: 048
     Dates: start: 20100821
  2. BLINDED PLACEBO [Interacting]
     Indication: ASTROCYTOMA, LOW GRADE
     Dosage: CODE NOT BROKEN
     Route: 048
     Dates: start: 20100821
  3. KEPPRA [Concomitant]
     Indication: EPILEPSY
     Dosage: 1000 MG AM, 1500 MG PM
     Route: 048
     Dates: start: 20090101
  4. BLINDED NO TREATMENT RECEIVED [Interacting]
     Indication: ASTROCYTOMA, LOW GRADE
     Dosage: CODE NOT BROKEN
     Route: 048
     Dates: start: 20100821
  5. VIMPAT [Interacting]
     Indication: EPILEPSY
     Dosage: 50 MG, BID
     Route: 048
     Dates: start: 20110527, end: 20110531
  6. TRILEPTAL / GP 47680 / TRI 476B [Suspect]
     Indication: EPILEPSY
     Dosage: 900 MG, BID
     Route: 048
     Dates: start: 20100101
  7. KEPPRA [Concomitant]
     Dosage: 1500 MG, UNK
     Route: 048

REACTIONS (2)
  - DRUG INTERACTION [None]
  - COMPLEX PARTIAL SEIZURES [None]
